FAERS Safety Report 21208769 (Version 1)
Quarter: 2022Q3

REPORT INFORMATION
  Report Type: Spontaneous
  Country: US (occurrence: None)
  Receive Date: 20220812
  Receipt Date: 20220812
  Transmission Date: 20221027
  Serious: Yes (Life-Threatening, Hospitalization)
  Sender: FDA-Public Use
  Company Number: None

PATIENT
  Age: 65 Year
  Sex: Female
  Weight: 119.25 kg

DRUGS (15)
  1. GAMMAPLEX [Suspect]
     Active Substance: HUMAN IMMUNOGLOBULIN G
     Indication: Chronic inflammatory demyelinating polyradiculoneuropathy
     Dosage: OTHER FREQUENCY : MONTHLY;?
     Route: 042
     Dates: start: 20180808
  2. GAMMAPLEX [Suspect]
     Active Substance: HUMAN IMMUNOGLOBULIN G
     Indication: Chronic inflammatory demyelinating polyradiculoneuropathy
     Dosage: OTHER FREQUENCY : MONTHLY;?
     Route: 042
     Dates: start: 20180808
  3. VIMPAT [Concomitant]
     Active Substance: LACOSAMIDE
     Dates: start: 20210901
  4. solinfenacin succinate [Concomitant]
     Dates: start: 20211120
  5. GABAPENTIN [Concomitant]
     Active Substance: GABAPENTIN
     Dates: start: 20211006
  6. fenofibrate 160mg [Concomitant]
     Dates: start: 20211006
  7. CELLCEPT [Concomitant]
     Active Substance: MYCOPHENOLATE MOFETIL
     Dates: start: 20071209
  8. PLAQUENIL [Concomitant]
     Active Substance: HYDROXYCHLOROQUINE SULFATE
     Dates: start: 20031209
  9. PREDNISONE [Concomitant]
     Active Substance: PREDNISONE
     Dates: start: 19981209
  10. ALLOPURINOL [Concomitant]
     Active Substance: ALLOPURINOL
     Dates: start: 20151209
  11. OXYCODONE [Concomitant]
     Active Substance: OXYCODONE
     Dates: start: 20200601
  12. FENTANYL [Concomitant]
     Active Substance: FENTANYL
     Dates: start: 20211006
  13. CLOTRIMAZOLE [Concomitant]
     Active Substance: CLOTRIMAZOLE
     Dates: start: 20181209
  14. MODAFINIL [Concomitant]
     Active Substance: MODAFINIL
     Dates: start: 20161209
  15. MOVANTIK [Concomitant]
     Active Substance: NALOXEGOL OXALATE
     Dates: start: 20181209

REACTIONS (1)
  - Deep vein thrombosis [None]

NARRATIVE: CASE EVENT DATE: 20220805
